FAERS Safety Report 21766773 (Version 4)
Quarter: 2023Q2

REPORT INFORMATION
  Report Type: Spontaneous
  Country: US (occurrence: US)
  Receive Date: 20221222
  Receipt Date: 20230523
  Transmission Date: 20230722
  Serious: Yes (Hospitalization, Disabling, Other)
  Sender: FDA-Public Use
  Company Number: US-PFIZER INC-PV202200127339

PATIENT
  Age: 53 Year
  Sex: Male
  Weight: 113.38 kg

DRUGS (4)
  1. LORBRENA [Suspect]
     Active Substance: LORLATINIB
     Indication: Lung cancer metastatic
     Dosage: UNK
     Dates: start: 202212, end: 202303
  2. METFORMIN HYDROCHLORIDE [Concomitant]
     Active Substance: METFORMIN HYDROCHLORIDE
     Indication: Blood glucose increased
     Dosage: UNK
  3. FAMOTIDINE [Concomitant]
     Active Substance: FAMOTIDINE
     Indication: Antacid therapy
     Dosage: 20 MG
  4. LISINOPRIL [Concomitant]
     Active Substance: LISINOPRIL
     Dosage: 2.5 MG

REACTIONS (14)
  - Pneumonia [Recovering/Resolving]
  - Visual impairment [Unknown]
  - Mental impairment [Unknown]
  - Neoplasm progression [Unknown]
  - Lung disorder [Unknown]
  - Hypertension [Unknown]
  - Dyspnoea [Unknown]
  - Memory impairment [Unknown]
  - Confusional state [Unknown]
  - Fatigue [Unknown]
  - Diarrhoea [Unknown]
  - Mood altered [Unknown]
  - Irritability [Unknown]
  - Cough [Unknown]

NARRATIVE: CASE EVENT DATE: 20230228
